FAERS Safety Report 8882811 (Version 1)
Quarter: 2012Q4

REPORT INFORMATION
  Report Type: 
  Country: US (occurrence: US)
  Receive Date: 20121102
  Receipt Date: 20121102
  Transmission Date: 20130627
  Serious: No
  Sender: FDA-Public Use
  Company Number: US-ASTRAZENECA-2011SE66495

PATIENT
  Age: 53 Year
  Sex: Female
  Weight: 56.7 kg

DRUGS (6)
  1. CRESTOR [Suspect]
     Indication: BLOOD CHOLESTEROL
     Route: 048
     Dates: start: 20111011, end: 20111031
  2. THYROID MEDS [Concomitant]
  3. XANAX [Concomitant]
  4. FOSAMAX [Concomitant]
     Indication: BONE DISORDER
  5. CYCLOBENZAPRINE [Concomitant]
     Indication: MUSCLE RELAXANT THERAPY
  6. NAPROXEN [Concomitant]
     Indication: ANALGESIC INTERVENTION SUPPORTIVE THERAPY

REACTIONS (16)
  - Malaise [Unknown]
  - Pain [Unknown]
  - Eye swelling [Unknown]
  - Vision blurred [Unknown]
  - Mobility decreased [Unknown]
  - Arthritis [Unknown]
  - Pain [Unknown]
  - Malaise [Unknown]
  - Muscular weakness [Unknown]
  - Headache [Unknown]
  - Nausea [Unknown]
  - Fatigue [Unknown]
  - Arthralgia [Unknown]
  - Asthenia [Unknown]
  - Fatigue [Unknown]
  - Fatigue [Unknown]
